APPROVED DRUG PRODUCT: TACROLIMUS
Active Ingredient: TACROLIMUS
Strength: EQ 5MG BASE
Dosage Form/Route: CAPSULE;ORAL
Application: A090402 | Product #001
Applicant: HERITAGE PHARMA LABS INC DBA AVET PHARMACEUTICALS LABS INC
Approved: Jul 1, 2010 | RLD: No | RS: No | Type: DISCN